FAERS Safety Report 9815023 (Version 1)
Quarter: 2014Q1

REPORT INFORMATION
  Report Type: Spontaneous
  Country: GB (occurrence: GB)
  Receive Date: 20140114
  Receipt Date: 20140114
  Transmission Date: 20141002
  Serious: Yes (Hospitalization)
  Sender: FDA-Public Use
  Company Number: GB-AMGEN-IRLSP2014001527

PATIENT
  Age: 76 Year
  Sex: 0
  Weight: 60.05 kg

DRUGS (14)
  1. PROLIA [Suspect]
     Indication: OSTEOPOROSIS
     Dosage: UNK
     Route: 058
     Dates: start: 201110, end: 20131119
  2. ADCAL D3 [Concomitant]
     Route: 065
  3. AMLODIPINE [Concomitant]
     Route: 065
  4. BISOPROLOL [Concomitant]
     Route: 065
  5. CITALOPRAM [Concomitant]
     Route: 065
  6. CREON [Concomitant]
     Route: 065
  7. FERROUS FUMARATE [Concomitant]
     Route: 065
  8. INDAPAMIDE [Concomitant]
     Route: 065
  9. LANSOPRAZOLE [Concomitant]
     Route: 065
  10. LOPERAMIDE [Concomitant]
     Route: 065
  11. PARACETAMOL [Concomitant]
     Route: 065
  12. SALMETEROL [Concomitant]
     Route: 065
  13. SODIUM BICARBONATE [Concomitant]
     Route: 065
  14. WARFARIN [Concomitant]
     Route: 065

REACTIONS (4)
  - Depressed mood [Unknown]
  - Paraesthesia [Unknown]
  - Asthenia [Unknown]
  - Hypocalcaemia [Recovered/Resolved]
